FAERS Safety Report 5765037-9 (Version None)
Quarter: 2008Q2

REPORT INFORMATION
  Report Type: 
  Country: None (occurrence: None)
  Receive Date: 20080611
  Receipt Date: 20080609
  Transmission Date: 20081010
  Serious: Yes (Other)
  Sender: FDA-Public Use
  Company Number: CA-ASTRAZENECA-2008AC00543

PATIENT
  Sex: Female

DRUGS (1)
  1. ESOMEPRAZOLE [Suspect]
     Indication: EROSIVE OESOPHAGITIS
     Route: 048

REACTIONS (4)
  - AURICULAR SWELLING [None]
  - HYPERSENSITIVITY [None]
  - THROAT IRRITATION [None]
  - URTICARIA [None]
